FAERS Safety Report 5696607-4 (Version None)
Quarter: 2008Q2

REPORT INFORMATION
  Report Type: 
  Country: None (occurrence: None)
  Receive Date: 20080408
  Receipt Date: 20061107
  Transmission Date: 20081010
  Serious: Yes (Other)
  Sender: FDA-Public Use
  Company Number: US-BAYER-US-2005-028016

PATIENT
  Age: 25 Year
  Sex: Female
  Weight: 82 kg

DRUGS (4)
  1. YASMIN [Suspect]
     Indication: ACNE
     Route: 048
     Dates: start: 20041028, end: 20051227
  2. PRILOSEC [Concomitant]
     Route: 048
  3. REGLAN [Concomitant]
     Route: 048
  4. ALBUTEROL [Concomitant]
     Route: 055

REACTIONS (2)
  - BREAST ENGORGEMENT [None]
  - FIBROADENOMA OF BREAST [None]
